FAERS Safety Report 4588448-6 (Version None)
Quarter: 2005Q1

REPORT INFORMATION
  Report Type: 
  Country: None (occurrence: None)
  Receive Date: 20050216
  Receipt Date: 20050128
  Transmission Date: 20050727
  Serious: Yes (Hospitalization, Other)
  Sender: FDA-Public Use
  Company Number: USA021224419

PATIENT
  Age: 47 Year
  Sex: Female

DRUGS (3)
  1. HUMALOG [Suspect]
     Indication: DIABETES MELLITUS
  2. HUMULIN N [Suspect]
     Indication: DIABETES MELLITUS
  3. HUMULIN R [Suspect]
     Indication: DIABETES MELLITUS

REACTIONS (43)
  - ABASIA [None]
  - ARRHYTHMIA [None]
  - AUTOIMMUNE THYROIDITIS [None]
  - BLADDER DISORDER [None]
  - BLOOD GLUCOSE DECREASED [None]
  - BLOOD GLUCOSE INCREASED [None]
  - BLOOD URINE PRESENT [None]
  - DEHYDRATION [None]
  - DIABETES MELLITUS INADEQUATE CONTROL [None]
  - DRUG HYPERSENSITIVITY [None]
  - DRUG INEFFECTIVE [None]
  - DRUG INTOLERANCE [None]
  - DYSPNOEA [None]
  - ELECTROLYTE IMBALANCE [None]
  - FALLOPIAN TUBE DISORDER [None]
  - FAT ATROPHY [None]
  - FEELING ABNORMAL [None]
  - FOOT FRACTURE [None]
  - HAEMATOCHEZIA [None]
  - HAEMORRHAGE [None]
  - HEART VALVE INSUFFICIENCY [None]
  - HYPERTENSION [None]
  - HYPOAESTHESIA [None]
  - INFECTION [None]
  - INFLAMMATION [None]
  - INTESTINAL FUNCTIONAL DISORDER [None]
  - LOSS OF CONSCIOUSNESS [None]
  - MENOPAUSE [None]
  - MENORRHAGIA [None]
  - MITRAL VALVE PROLAPSE [None]
  - MUSCLE SPASMS [None]
  - MYOCARDIAL INFARCTION [None]
  - NAUSEA [None]
  - OLIGODIPSIA [None]
  - PAIN [None]
  - POST PROCEDURAL COMPLICATION [None]
  - PURULENCE [None]
  - RIB FRACTURE [None]
  - SKIN ULCER [None]
  - UNEVALUABLE EVENT [None]
  - VISION BLURRED [None]
  - WEIGHT DECREASED [None]
  - WHITE BLOOD CELL COUNT DECREASED [None]
